FAERS Safety Report 8489148-2 (Version None)
Quarter: 2012Q3

REPORT INFORMATION
  Report Type: 
  Country: None (occurrence: None)
  Receive Date: 20120705
  Receipt Date: 20120625
  Transmission Date: 20120928
  Serious: Yes (Hospitalization, Other)
  Sender: FDA-Public Use
  Company Number: DE-ASTRAZENECA-2012SE33397

PATIENT
  Age: 887 Month
  Sex: Male
  Weight: 67 kg

DRUGS (4)
  1. MEMANTINE HYDROCHLORIDE [Concomitant]
  2. CITALOPRAM HYDROBROMIDE [Interacting]
  3. SEROQUEL [Suspect]
     Indication: RESTLESSNESS
     Route: 048
     Dates: start: 20120101, end: 20120501
  4. ASPIRIN [Concomitant]

REACTIONS (4)
  - DRUG INTERACTION [None]
  - INFLAMMATION [None]
  - FATIGUE [None]
  - OFF LABEL USE [None]
